FAERS Safety Report 10088294 (Version 1)
Quarter: 2014Q2

REPORT INFORMATION
  Report Type: Other
  Country: US (occurrence: US)
  Receive Date: 20140421
  Receipt Date: 20140421
  Transmission Date: 20141212
  Serious: Yes (Other)
  Sender: FDA-Public Use
  Company Number: US-BRISTOL-MYERS SQUIBB COMPANY-20624391

PATIENT
  Age: 44 Year
  Sex: Male

DRUGS (1)
  1. IPILIMUMAB [Suspect]
     Indication: METASTATIC MALIGNANT MELANOMA

REACTIONS (1)
  - Demyelinating polyneuropathy [Recovering/Resolving]
